FAERS Safety Report 10902278 (Version 2)
Quarter: 2015Q1

REPORT INFORMATION
  Report Type: Spontaneous
  Country: HU (occurrence: HU)
  Receive Date: 20150310
  Receipt Date: 20150327
  Transmission Date: 20150721
  Serious: Yes (Life-Threatening, Hospitalization)
  Sender: FDA-Public Use
  Company Number: HU-BAYER-2015-033006

PATIENT
  Age: 73 Year
  Sex: Male

DRUGS (2)
  1. NIFEDIPINE. [Suspect]
     Active Substance: NIFEDIPINE
     Indication: HYPERTENSIVE CRISIS
     Dosage: 2 PUFF(S), UNK
     Route: 055
  2. ACTRAPID [Suspect]
     Active Substance: INSULIN HUMAN
     Indication: BLOOD GLUCOSE INCREASED
     Dosage: 8 UNITS

REACTIONS (6)
  - Hyponatraemia [None]
  - Ischaemic stroke [None]
  - Carotid artery occlusion [None]
  - Unresponsive to stimuli [None]
  - Brain compression [None]
  - Coma [None]
